FAERS Safety Report 9904413 (Version 1)
Quarter: 2014Q1

REPORT INFORMATION
  Report Type: Report from Study
  Country: DE (occurrence: DE)
  Receive Date: 20140218
  Receipt Date: 20140218
  Transmission Date: 20141002
  Serious: Yes (Hospitalization)
  Sender: FDA-Public Use
  Company Number: DE-ROCHE-1344082

PATIENT
  Age: 57 Year
  Sex: Female

DRUGS (11)
  1. RITUXIMAB [Suspect]
     Indication: RHEUMATOID ARTHRITIS
     Route: 065
     Dates: start: 20090106
  2. RITUXIMAB [Suspect]
     Route: 065
     Dates: start: 20090819
  3. RITUXIMAB [Suspect]
     Route: 065
     Dates: start: 20100615
  4. RITUXIMAB [Suspect]
     Route: 065
     Dates: start: 20110307
  5. RITUXIMAB [Suspect]
     Route: 065
     Dates: start: 20111101, end: 20121009
  6. METHOTREXATE [Suspect]
     Indication: PRODUCT USED FOR UNKNOWN INDICATION
     Route: 065
     Dates: start: 20090106
  7. METHOTREXATE [Suspect]
     Route: 065
     Dates: start: 20090428, end: 20090902
  8. METHOTREXATE [Suspect]
     Route: 065
     Dates: start: 20100128, end: 20100128
  9. METHOTREXATE [Suspect]
     Route: 065
     Dates: start: 20100628
  10. METHOTREXATE [Suspect]
     Route: 065
     Dates: start: 20110106
  11. METHOTREXATE [Suspect]
     Route: 065
     Dates: start: 20120106

REACTIONS (6)
  - Pelvic fracture [Unknown]
  - Large intestine polyp [Unknown]
  - Spinal pain [Unknown]
  - Spinal fracture [Unknown]
  - Spinal column stenosis [Unknown]
  - Hypertensive crisis [Unknown]
